FAERS Safety Report 25503141 (Version 1)
Quarter: 2025Q3

REPORT INFORMATION
  Report Type: Spontaneous
  Country: US (occurrence: US)
  Receive Date: 20250702
  Receipt Date: 20250702
  Transmission Date: 20251021
  Serious: Yes (Other)
  Sender: GLAXOSMITHKLINE
  Company Number: US-GLAXOSMITHKLINE INC-US2025079981

PATIENT
  Sex: Female

DRUGS (1)
  1. TRELEGY ELLIPTA [Suspect]
     Active Substance: FLUTICASONE FUROATE\UMECLIDINIUM BROMIDE\VILANTEROL TRIFENATATE
     Indication: Product used for unknown indication
     Dosage: 1 DF, BID

REACTIONS (7)
  - Knee arthroplasty [Unknown]
  - Product prescribing error [Unknown]
  - Prescription drug used without a prescription [Unknown]
  - Underdose [Unknown]
  - Wrong technique in device usage process [Unknown]
  - Incorrect route of product administration [Unknown]
  - Product dose omission issue [Unknown]
